FAERS Safety Report 13681067 (Version 2)
Quarter: 2017Q3

REPORT INFORMATION
  Report Type: Spontaneous
  Country: CZ (occurrence: CZ)
  Receive Date: 20170623
  Receipt Date: 20170703
  Transmission Date: 20171127
  Serious: Yes (Life-Threatening, Hospitalization, Other)
  Sender: FDA-Public Use
  Company Number: CZ-JNJFOC-20170619089

PATIENT
  Sex: Female

DRUGS (4)
  1. ZYRTEC [Suspect]
     Active Substance: CETIRIZINE HYDROCHLORIDE
     Route: 048
  2. STOPEX [Suspect]
     Active Substance: DEXTROMETHORPHAN HYDROBROMIDE
     Indication: SUICIDE ATTEMPT
     Route: 065
  3. ZENARO [Suspect]
     Active Substance: LEVOCETIRIZINE
     Indication: SUICIDE ATTEMPT
     Dosage: AT A DOSE OF 5X30
     Route: 048
  4. ZYRTEC [Suspect]
     Active Substance: CETIRIZINE HYDROCHLORIDE
     Indication: SUICIDE ATTEMPT
     Dosage: AT A DOSE OF 10 X 20 (200 MG, TOTAL)
     Route: 048

REACTIONS (2)
  - Intentional product misuse [Unknown]
  - Suicide attempt [Unknown]
